FAERS Safety Report 16829876 (Version 1)
Quarter: 2019Q3

REPORT INFORMATION
  Report Type: Spontaneous
  Country: US (occurrence: US)
  Receive Date: 20190919
  Receipt Date: 20190919
  Transmission Date: 20191005
  Serious: Yes (Other)
  Sender: FDA-Public Use
  Company Number: US-CUMBERLAND-2019-US-000008

PATIENT
  Age: 51 Year
  Sex: Female

DRUGS (1)
  1. CALDOLOR [Suspect]
     Active Substance: IBUPROFEN
     Route: 042
     Dates: start: 20190717, end: 20190717

REACTIONS (2)
  - Compartment syndrome [Unknown]
  - Product administration error [Unknown]

NARRATIVE: CASE EVENT DATE: 20190717
